FAERS Safety Report 7958450-2 (Version None)
Quarter: 2011Q4

REPORT INFORMATION
  Report Type: 
  Country: None (occurrence: None)
  Receive Date: 20111205
  Receipt Date: 20111122
  Transmission Date: 20120403
  Serious: Yes (Hospitalization)
  Sender: FDA-Public Use
  Company Number: BR-ELI_LILLY_AND_COMPANY-BR201111007026

PATIENT
  Sex: Female
  Weight: 75 kg

DRUGS (6)
  1. CLONAZEPAM [Concomitant]
     Indication: DEPRESSION
     Dosage: 2 MG, QD
     Route: 065
  2. FORTEO [Suspect]
     Indication: OSTEOPOROSIS
     Dosage: UNK, QD
     Route: 065
     Dates: start: 20110801
  3. PREVENCOR [Concomitant]
     Dosage: 20 MG, BID
     Route: 065
  4. CORDIL [Concomitant]
     Indication: ARRHYTHMIA
     Dosage: 90 MG, QD
     Route: 065
  5. PAROXETINE HCL [Concomitant]
     Indication: DEPRESSION
     Dosage: 20 MG, QD
     Route: 065
  6. DEPAKOTE [Concomitant]
     Indication: DEPRESSION
     Dosage: 500 MG, QD
     Route: 065

REACTIONS (1)
  - SPINAL FRACTURE [None]
